FAERS Safety Report 8099139-1 (Version None)
Quarter: 2012Q1

REPORT INFORMATION
  Report Type: 
  Country: None (occurrence: None)
  Receive Date: 20120129
  Receipt Date: 20110927
  Transmission Date: 20120608
  Serious: No
  Sender: FDA-Public Use
  Company Number: US-ABBOTT-11P-163-0860695-00

PATIENT
  Age: 55 Year
  Sex: Female

DRUGS (10)
  1. TOPAMAX [Concomitant]
     Indication: MIGRAINE
     Dosage: DAILY
  2. UNKNOWN BLADDER MEDICATION [Concomitant]
     Indication: PRODUCT USED FOR UNKNOWN INDICATION
  3. FLEXERIL [Concomitant]
     Indication: PRODUCT USED FOR UNKNOWN INDICATION
     Dosage: DAILY
  4. UNKNOWN BLADDER MEDICATION [Concomitant]
  5. TRAMADOL HCL [Concomitant]
     Indication: PRODUCT USED FOR UNKNOWN INDICATION
     Dosage: DAILY
  6. TRAZODONE HCL [Concomitant]
     Indication: PRODUCT USED FOR UNKNOWN INDICATION
     Dosage: DAILY
  7. XANAX [Concomitant]
     Indication: PRODUCT USED FOR UNKNOWN INDICATION
     Dosage: DAILY
  8. FENTANYL [Concomitant]
     Indication: PAIN
     Dosage: PATCH EVERY OTHER DAY
  9. HUMIRA [Suspect]
     Indication: CROHN'S DISEASE
     Dates: start: 20080101
  10. HUMIRA [Suspect]

REACTIONS (9)
  - SKIN DISCOLOURATION [None]
  - MALAISE [None]
  - PARAESTHESIA [None]
  - OEDEMA PERIPHERAL [None]
  - WEIGHT DECREASED [None]
  - PALPITATIONS [None]
  - GINGIVAL BLEEDING [None]
  - DRUG INEFFECTIVE [None]
  - SYSTEMIC LUPUS ERYTHEMATOSUS [None]
